FAERS Safety Report 5058364-4 (Version None)
Quarter: 2006Q2

REPORT INFORMATION
  Report Type: 
  Country: None (occurrence: None)
  Receive Date: 20060628
  Receipt Date: 20060123
  Transmission Date: 20061013
  Serious: Yes (Hospitalization)
  Sender: FDA-Public Use
  Company Number: 433439

PATIENT
  Sex: Female

DRUGS (1)
  1. KLONOPIN [Suspect]
     Indication: STIFF-MAN SYNDROME
     Dosage: 1  MG 4 PER DAY ORAL
     Route: 048

REACTIONS (1)
  - REBOUND EFFECT [None]
